FAERS Safety Report 7577448-X (Version None)
Quarter: 2011Q2

REPORT INFORMATION
  Report Type: 
  Country: None (occurrence: None)
  Receive Date: 20110628
  Receipt Date: 20110622
  Transmission Date: 20111010
  Serious: Yes (Other)
  Sender: FDA-Public Use
  Company Number: DK-BAYER-2011-053823

PATIENT
  Age: 68 Year
  Sex: Male
  Weight: 81 kg

DRUGS (6)
  1. LEVOTHYROXINE SODIUM [Concomitant]
     Indication: HYPOTHYROIDISM
     Dosage: DAILY DOSE .2 MG
     Route: 048
     Dates: start: 20050106
  2. SERETIDE [Concomitant]
     Dosage: DAILY DOSE 1000 MG
     Route: 045
     Dates: start: 20000101
  3. SORAFENIB (RAF KINASE INHIBITOR) [Suspect]
     Indication: THYROID CANCER METASTATIC
     Dosage: 400 MG, BID
     Route: 048
     Dates: start: 20100602, end: 20101112
  4. OMEPRAZOLE [Concomitant]
     Indication: HYPERCHLORHYDRIA
     Dosage: DAILY DOSE 20 MG
     Route: 048
     Dates: start: 20070101
  5. AORIA [Concomitant]
     Indication: HYPERTENSION
     Dosage: DAILY DOSE 16 MG
     Route: 048
     Dates: start: 20080101
  6. SERETIDE [Concomitant]
     Indication: ASTHMA
     Dosage: DAILY DOSE 100 MG
     Dates: start: 20000101

REACTIONS (2)
  - CEREBRAL ISCHAEMIA [None]
  - TUNNEL VISION [None]
